FAERS Safety Report 16610174 (Version 2)
Quarter: 2019Q3

REPORT INFORMATION
  Report Type: Spontaneous
  Country: US (occurrence: US)
  Receive Date: 20190722
  Receipt Date: 20190920
  Transmission Date: 20191004
  Serious: No
  Sender: FDA-Public Use
  Company Number: US-ALNYLAM PHARMACEUTICALS, INC.-ALN-2019-000374

PATIENT
  Sex: Male

DRUGS (1)
  1. ONPATTRO [Suspect]
     Active Substance: PATISIRAN SODIUM
     Indication: HEREDITARY NEUROPATHIC AMYLOIDOSIS
     Dosage: 2 VIALS, Q3W
     Route: 042
     Dates: start: 20190508

REACTIONS (4)
  - Unevaluable event [Unknown]
  - Infusion related reaction [Unknown]
  - Infusion site warmth [Unknown]
  - Muscular weakness [Unknown]
